FAERS Safety Report 4412129-2 (Version None)
Quarter: 2004Q3

REPORT INFORMATION
  Report Type: 
  Country: None (occurrence: None)
  Receive Date: 20040730
  Receipt Date: 20040714
  Transmission Date: 20050211
  Serious: Yes (Hospitalization)
  Sender: FDA-Public Use
  Company Number: LV-GLAXOSMITHKLINE-B0340968A

PATIENT
  Age: 29 Year
  Sex: Female

DRUGS (5)
  1. COMBIVIR [Suspect]
     Indication: HIV INFECTION
     Route: 048
     Dates: start: 20040522, end: 20040603
  2. INDINAVIR SULFATE [Suspect]
     Indication: HIV INFECTION
     Dosage: 400MG TWICE PER DAY
     Route: 065
     Dates: start: 20040521, end: 20040601
  3. RITONAVIR [Suspect]
     Indication: HIV INFECTION
     Dosage: 100MG TWICE PER DAY
     Route: 065
     Dates: start: 20040521, end: 20040601
  4. ITRACONAZOLE [Suspect]
     Indication: CRYPTOCOCCOSIS
     Dosage: 200MG TWICE PER DAY
     Route: 065
     Dates: start: 20040521, end: 20040601
  5. SULFAMETHOXAZOLE + TRIMETHOPRIM [Suspect]
     Route: 065

REACTIONS (2)
  - DERMATITIS [None]
  - OEDEMA PERIPHERAL [None]
